FAERS Safety Report 23735316 (Version 2)
Quarter: 2024Q2

REPORT INFORMATION
  Report Type: Spontaneous
  Country: PT (occurrence: PT)
  Receive Date: 20240412
  Receipt Date: 20240605
  Transmission Date: 20240716
  Serious: Yes (Hospitalization)
  Sender: FDA-Public Use
  Company Number: None

PATIENT
  Age: 62 Year
  Sex: Female
  Weight: 70 kg

DRUGS (1)
  1. CARBOPLATIN [Suspect]
     Active Substance: CARBOPLATIN
     Indication: Product used for unknown indication
     Dosage: UNK
     Route: 042
     Dates: start: 20240221, end: 20240221

REACTIONS (4)
  - Hyperhidrosis [Unknown]
  - Dyspnoea [Unknown]
  - Abdominal pain upper [Unknown]
  - Erythema [Unknown]

NARRATIVE: CASE EVENT DATE: 20240221
